FAERS Safety Report 22825492 (Version 4)
Quarter: 2024Q4

REPORT INFORMATION
  Report Type: Spontaneous
  Country: ES (occurrence: ES)
  Receive Date: 20230816
  Receipt Date: 20241217
  Transmission Date: 20250115
  Serious: Yes (Death, Other)
  Sender: CELLTRION
  Company Number: ES-CELLTRION INC.-2023ES015990

PATIENT

DRUGS (3)
  1. BEVACIZUMAB [Suspect]
     Active Substance: BEVACIZUMAB
     Indication: Hepatocellular carcinoma
     Dosage: 990 MG
     Route: 065
     Dates: start: 20230306
  2. ATEZOLIZUMAB [Suspect]
     Active Substance: ATEZOLIZUMAB
     Indication: Hepatocellular carcinoma
     Dosage: 1200 MG, EVERY 3 WEEKS (ON 19/JUN/2023, HE RECEIVED HIS MOST RECENT DOSE OF ATEZOLIZUMAB (1200 MG) P
     Route: 042
     Dates: start: 20230306
  3. JANUMET [Concomitant]
     Active Substance: METFORMIN HYDROCHLORIDE\SITAGLIPTIN PHOSPHATE
     Dosage: 0.5/DAY
     Dates: start: 20220127

REACTIONS (4)
  - Death [Fatal]
  - Hyperthyroidism [Recovered/Resolved]
  - Hypertension [Not Recovered/Not Resolved]
  - Intentional product use issue [Unknown]

NARRATIVE: CASE EVENT DATE: 20230707
